FAERS Safety Report 6044952-5 (Version None)
Quarter: 2009Q1

REPORT INFORMATION
  Report Type: 
  Country: None (occurrence: None)
  Receive Date: 20090116
  Receipt Date: 20090116
  Transmission Date: 20090719
  Serious: Yes (Other)
  Sender: FDA-Public Use
  Company Number: None

PATIENT
  Sex: Female
  Weight: 104.3273 kg

DRUGS (1)
  1. DEPAKOTE [Suspect]
     Indication: CONVULSION
     Dosage: 500MG BID PO
     Route: 048
     Dates: end: 20090115

REACTIONS (4)
  - DIARRHOEA [None]
  - MIGRAINE [None]
  - PRODUCT QUALITY ISSUE [None]
  - VOMITING [None]
